FAERS Safety Report 9693492 (Version 1)
Quarter: 2013Q4

REPORT INFORMATION
  Report Type: Spontaneous
  Country: US (occurrence: US)
  Receive Date: 20131118
  Receipt Date: 20131118
  Transmission Date: 20140711
  Serious: Yes (Other)
  Sender: FDA-Public Use
  Company Number: CHPA2013US017119

PATIENT
  Age: 69 Year
  Sex: Female

DRUGS (7)
  1. MAALOX ANTACID/ANTIGAS MAX LIQ [Suspect]
     Indication: FLATULENCE
     Dosage: 2 TSP, PRN
     Route: 048
  2. MAALOX ANTACID/ANTIGAS MAX LIQ [Suspect]
     Indication: ABDOMINAL DISTENSION
     Dosage: 2 TSP, BID
     Route: 048
  3. MAALOX ANTACID/ANTIGAS MAX LIQ [Suspect]
     Indication: GASTROOESOPHAGEAL REFLUX DISEASE
  4. MAALOX ANTACID/ANTIGAS MAX LIQ [Suspect]
     Indication: DYSPEPSIA
  5. MAALOX ANTACID/ANTIGAS MAX LIQ [Suspect]
     Indication: OFF LABEL USE
  6. HYDROCODONE [Concomitant]
     Indication: ARTHRITIS
     Dosage: 10/325 MG, UNK
  7. ATENOLOL [Concomitant]
     Indication: HYPERTENSION

REACTIONS (4)
  - Gastritis [Not Recovered/Not Resolved]
  - Dyspepsia [Not Recovered/Not Resolved]
  - Gastrooesophageal reflux disease [Not Recovered/Not Resolved]
  - Expired drug administered [Unknown]
